FAERS Safety Report 7126398-1 (Version None)
Quarter: 2010Q4

REPORT INFORMATION
  Report Type: 
  Country: None (occurrence: None)
  Receive Date: 20101129
  Receipt Date: 20101119
  Transmission Date: 20110411
  Serious: Yes (Death)
  Sender: FDA-Public Use
  Company Number: VE-PFIZER INC-2010141133

PATIENT
  Age: 76 Year
  Sex: Male

DRUGS (4)
  1. LIPITOR [Suspect]
     Indication: HYPERCHOLESTEROLAEMIA
     Dosage: 80 MG, 1X/DAY
     Route: 048
     Dates: start: 20070101
  2. LIPITOR [Suspect]
     Dosage: 40 MG, 1X/DAY
     Route: 048
  3. APROVEL [Concomitant]
     Dosage: 300 MG, 1X/DAY
     Route: 048
     Dates: start: 20070101
  4. GLUCOPHAGE [Concomitant]
     Dosage: 1 TABLET DAILY
     Route: 048
     Dates: start: 20091101

REACTIONS (3)
  - HEPATIC FAILURE [None]
  - INFARCTION [None]
  - RENAL FAILURE [None]
